FAERS Safety Report 23176739 (Version 1)
Quarter: 2023Q4

REPORT INFORMATION
  Report Type: Spontaneous
  Country: US (occurrence: US)
  Receive Date: 20231113
  Receipt Date: 20231113
  Transmission Date: 20240110
  Serious: No
  Sender: FDA-Public Use
  Company Number: US-PERRIGO-23US001942

PATIENT
  Sex: Male

DRUGS (1)
  1. POLYETHYLENE GLYCOL 3350 [Suspect]
     Active Substance: POLYETHYLENE GLYCOL 3350
     Indication: Product used for unknown indication
     Dosage: APPROXIMATELY 4.25 GRAMS, UNKNOWN
     Route: 048
     Dates: start: 202302

REACTIONS (2)
  - Blood magnesium increased [Unknown]
  - Underdose [Unknown]

NARRATIVE: CASE EVENT DATE: 20230201
